FAERS Safety Report 7790754-9 (Version None)
Quarter: 2011Q3

REPORT INFORMATION
  Report Type: 
  Country: None (occurrence: None)
  Receive Date: 20110930
  Receipt Date: 20110921
  Transmission Date: 20111222
  Serious: Yes (Other)
  Sender: FDA-Public Use
  Company Number: CH-ASTRAZENECA-2011SE56952

PATIENT
  Age: 71 Day
  Sex: Male

DRUGS (6)
  1. MALTOFER [Concomitant]
     Route: 048
  2. VI-DE 3 [Concomitant]
     Route: 048
  3. CALCIUM CARBONATE [Concomitant]
     Route: 048
  4. PHENOBARBITAL [Concomitant]
     Route: 048
  5. INFLORAN [Concomitant]
     Route: 048
  6. MEROPENEM [Suspect]
     Indication: MENINGITIS ENTEROCOCCAL
     Route: 041
     Dates: start: 20110806, end: 20110824

REACTIONS (2)
  - AGRANULOCYTOSIS [None]
  - OFF LABEL USE [None]
